FAERS Safety Report 6571761 (Version 2)
Quarter: 2020Q3

REPORT INFORMATION
  Report Type: Report from Study
  Country: GB (occurrence: GB)
  Receive Date: 20080306
  Receipt Date: 20080327
  Transmission Date: 20201104
  Serious: Yes (Other)
  Sender: FDA-Public Use
  Company Number: GB-ROCHE-550858

PATIENT
  Age: 79 Year
  Sex: Female

DRUGS (2)
  1. IBANDRONIC ACID. [Suspect]
     Active Substance: IBANDRONIC ACID
     Indication: OSTEOPOROSIS
     Route: 048
     Dates: start: 20060428
  2. LOPRAZOLAM [Concomitant]
     Active Substance: LOPRAZOLAM
     Indication: INSOMNIA
     Route: 048
     Dates: start: 20061002

REACTIONS (1)
  - Breast cancer [Recovering/Resolving]

NARRATIVE: CASE EVENT DATE: 20070201
